FAERS Safety Report 7069269-1 (Version None)
Quarter: 2010Q4

REPORT INFORMATION
  Report Type: 
  Country: None (occurrence: None)
  Receive Date: 20101028
  Receipt Date: 20101020
  Transmission Date: 20110411
  Serious: Yes (Hospitalization)
  Sender: FDA-Public Use
  Company Number: JP-ABBOTT-10P-087-0671451-00

PATIENT
  Sex: Female
  Weight: 50 kg

DRUGS (11)
  1. HUMIRA [Suspect]
     Indication: RHEUMATOID ARTHRITIS
     Route: 058
     Dates: start: 20100617, end: 20100727
  2. WARFARIN SODIUM [Suspect]
     Indication: ANTICOAGULANT THERAPY
     Route: 048
     Dates: end: 20100805
  3. WARFARIN SODIUM [Suspect]
     Dates: start: 20100806
  4. WARFARIN SODIUM [Suspect]
  5. WARFARIN SODIUM [Suspect]
  6. METHOTREXATE [Concomitant]
     Indication: RHEUMATOID ARTHRITIS
     Route: 048
  7. FOLIC ACID [Concomitant]
     Indication: PROPHYLAXIS
     Route: 048
  8. FOLIC ACID [Concomitant]
     Indication: ADVERSE EVENT
  9. CELECOXIB [Concomitant]
     Indication: RHEUMATOID ARTHRITIS
     Route: 048
  10. METHYLPREDNISOLONE [Concomitant]
     Indication: RHEUMATOID ARTHRITIS
     Route: 048
  11. LEVOFLOXACIN HYDRATE [Concomitant]
     Indication: PRODUCT USED FOR UNKNOWN INDICATION
     Dates: start: 20100812, end: 20100816

REACTIONS (6)
  - ASTHMA [None]
  - CONJUNCTIVAL HAEMORRHAGE [None]
  - HAEMORRHAGE SUBCUTANEOUS [None]
  - INTERNATIONAL NORMALISED RATIO INCREASED [None]
  - MOUTH HAEMORRHAGE [None]
  - PROTHROMBIN TIME PROLONGED [None]
